FAERS Safety Report 20858445 (Version 1)
Quarter: 2022Q2

REPORT INFORMATION
  Report Type: Spontaneous
  Country: BR (occurrence: BR)
  Receive Date: 20220521
  Receipt Date: 20220521
  Transmission Date: 20220721
  Serious: Yes (Other)
  Sender: FDA-Public Use
  Company Number: BR-TAKEDA-2022TUS032659

PATIENT
  Sex: Female

DRUGS (2)
  1. DEXILANT [Suspect]
     Active Substance: DEXLANSOPRAZOLE
     Indication: Erosive oesophagitis
     Dosage: 60 MILLIGRAM, QD
     Route: 048
  2. DIMETHICONE\METOCLOPRAMIDE\PEPSIN [Suspect]
     Active Substance: DIMETHICONE\METOCLOPRAMIDE\PEPSIN
     Indication: Product used for unknown indication
     Dosage: UNK UNK, QD
     Route: 065

REACTIONS (9)
  - Oropharyngeal blistering [Unknown]
  - Gastritis erosive [Unknown]
  - Off label use [Unknown]
  - Multiple allergies [Unknown]
  - Blister [Unknown]
  - Ear discomfort [Unknown]
  - Hiatus hernia [Unknown]
  - Erythema [Unknown]
  - Adverse event [Unknown]
